FAERS Safety Report 23158252 (Version 5)
Quarter: 2024Q2

REPORT INFORMATION
  Report Type: Spontaneous
  Country: DE (occurrence: DE)
  Receive Date: 20231108
  Receipt Date: 20240606
  Transmission Date: 20240716
  Serious: Yes (Death, Life-Threatening, Hospitalization, Other)
  Sender: FDA-Public Use
  Company Number: DE-002147023-NVSC2023DE169083

PATIENT
  Sex: Female
  Weight: 61.4 kg

DRUGS (5)
  1. FULVESTRANT [Suspect]
     Active Substance: FULVESTRANT
     Indication: Hormone receptor positive HER2 negative breast cancer
     Dosage: 500 MILLIGRAM, Q2W (DAILY DOSE)
     Route: 030
     Dates: start: 20190828, end: 20190924
  2. FULVESTRANT [Suspect]
     Active Substance: FULVESTRANT
     Dosage: 500 MILLIGRAM, Q4W (DAILY DOSE)
     Route: 030
     Dates: start: 20190925, end: 20230823
  3. KISQALI [Suspect]
     Active Substance: RIBOCICLIB
     Indication: Hormone receptor positive HER2 negative breast cancer
     Dosage: 600 MILLIGRAM, ONCE A DAY (REGIMEN 21 DAYS INTAKE, 7 DAYS PAUSE)
     Route: 048
     Dates: start: 20190911, end: 20191231
  4. KISQALI [Suspect]
     Active Substance: RIBOCICLIB
     Dosage: 600 MILLIGRAM, ONCE A DAY, (REGIMEN 21 DAYS INTAKE, 7 DAYS PAUSE)
     Route: 048
     Dates: start: 20200102, end: 20200122
  5. KISQALI [Suspect]
     Active Substance: RIBOCICLIB
     Dosage: 600 MILLIGRAM, ONCE A DAY  (REGIMEN 21 DAYS INTAKE, 7 DAYS PAUSE)
     Route: 048
     Dates: start: 20200129, end: 20230823

REACTIONS (16)
  - Acute myocardial infarction [Fatal]
  - Cardiac failure [Fatal]
  - Encephalopathy [Fatal]
  - Atrial fibrillation [Fatal]
  - Coronary artery disease [Recovered/Resolved with Sequelae]
  - Cardiomegaly [Not Recovered/Not Resolved]
  - Metastases to central nervous system [Not Recovered/Not Resolved]
  - Dizziness [Not Recovered/Not Resolved]
  - Pulmonary congestion [Not Recovered/Not Resolved]
  - Pneumonia [Recovered/Resolved]
  - Lung hypoinflation [Not Recovered/Not Resolved]
  - Microangiopathy [Not Recovered/Not Resolved]
  - Pleural effusion [Unknown]
  - Central nervous system lesion [Unknown]
  - Stenosis [Unknown]
  - Macroangiopathy [Not Recovered/Not Resolved]

NARRATIVE: CASE EVENT DATE: 20230717
